FAERS Safety Report 8767169 (Version 1)
Quarter: 2012Q4

REPORT INFORMATION
  Report Type: 
  Country: US (occurrence: US)
  Receive Date: 20120904
  Receipt Date: 20120904
  Transmission Date: 20130627
  Serious: Yes (Hospitalization)
  Sender: FDA-Public Use
  Company Number: US-VERTEX PHARMACEUTICAL INC.-2012-020402

PATIENT
  Sex: Male
  Weight: 54 kg

DRUGS (10)
  1. VX-950 [Suspect]
     Indication: HEPATITIS C
     Dosage: 750 mg, tid
     Route: 048
     Dates: start: 20120523
  2. PEGASYS [Concomitant]
     Indication: HEPATITIS C
     Dosage: 180 UNK, UNK
     Route: 058
     Dates: start: 20120523
  3. RIBASPHERE [Concomitant]
     Indication: HEPATITIS C
     Dosage: 400 mg, bid
     Dates: start: 20120523
  4. VENTOLIN HFA [Concomitant]
     Dosage: 90 ?g, qid
  5. SPIRIVA HANDIHALER [Concomitant]
     Dosage: 18 ?g, qd
  6. XANAX [Concomitant]
     Dosage: 0.5 mg, UNK
  7. OMEPRAZOLE MAGNESIUM DR [Concomitant]
     Dosage: 20.6 mg, bid
  8. ALPRAZOLAM [Concomitant]
     Dosage: 0.5 mg, tid
  9. OXYCODONE HCL [Concomitant]
     Dosage: 15 mg, qid
  10. NIACIN [Concomitant]
     Dosage: 500 mg, bid

REACTIONS (1)
  - Pneumonia [Unknown]
